FAERS Safety Report 9753179 (Version 2)
Quarter: 2015Q3

REPORT INFORMATION
  Report Type: Spontaneous
  Country: US (occurrence: US)
  Receive Date: 20131213
  Receipt Date: 20150805
  Transmission Date: 20151125
  Serious: No
  Sender: FDA-Public Use
  Company Number: US-GILEAD-2010-0026837

PATIENT
  Age: 71 Year
  Sex: Female
  Weight: 82.55 kg

DRUGS (11)
  1. PROVIGIL [Concomitant]
     Active Substance: MODAFINIL
  2. ASPIRIN. [Concomitant]
     Active Substance: ASPIRIN
  3. PRILOSEC [Concomitant]
     Active Substance: OMEPRAZOLE MAGNESIUM
  4. INFED [Concomitant]
     Active Substance: IRON DEXTRAN
  5. NIACIN. [Concomitant]
     Active Substance: NIACIN
  6. LETAIRIS [Suspect]
     Active Substance: AMBRISENTAN
     Indication: PULMONARY ARTERIAL HYPERTENSION
     Route: 048
     Dates: start: 20080222
  7. OMEGA 3 FISH OIL [Concomitant]
     Active Substance: FISH OIL\OMEGA-3 FATTY ACIDS
  8. WOMENS MULTIVITAMIN [Concomitant]
  9. VITAMIN D [Concomitant]
     Active Substance: CHOLECALCIFEROL
  10. IRON [Concomitant]
     Active Substance: IRON
  11. CLARITIN [Concomitant]
     Active Substance: LORATADINE

REACTIONS (1)
  - Urinary tract infection [Unknown]
